FAERS Safety Report 7291721-4 (Version None)
Quarter: 2011Q1

REPORT INFORMATION
  Report Type: 
  Country: None (occurrence: None)
  Receive Date: 20110214
  Receipt Date: 20110207
  Transmission Date: 20110831
  Serious: Yes (Other)
  Sender: FDA-Public Use
  Company Number: US-PFIZER INC-2011027213

PATIENT

DRUGS (13)
  1. WELLBUTRIN XL [Concomitant]
     Dosage: 150 MG, 1X/DAY
  2. LYRICA [Suspect]
     Dosage: 75 MG, 4X/DAY
     Route: 048
  3. ATENOLOL [Concomitant]
     Dosage: 50 MG, 1 AND 1/2 DAILY
  4. LORCET-HD [Concomitant]
     Dosage: 10/650, TWO TO THREE DAILY
  5. DIGOXIN [Concomitant]
     Dosage: 0.125 UNK, ONE Q DAY
  6. FUROSEMIDE [Concomitant]
     Dosage: 40 MG, 2X/DAY
  7. CLONIDINE [Concomitant]
     Dosage: 0.1 MG, 2X/DAY
  8. XANAX [Concomitant]
     Indication: NERVOUSNESS
     Dosage: 0.25 MG, ONE HALF TWICE DAILY
  9. LISINOPRIL [Concomitant]
     Dosage: 20 MG, 1X/DAY
  10. KLOR-CON [Concomitant]
     Dosage: 20 MEQ, 1X/DAY
     Route: 048
  11. WARFARIN SODIUM [Concomitant]
  12. CARDURA [Concomitant]
     Dosage: 2 MG, 2X/DAY, TAKES IRREGULARLY
  13. CELEBREX [Suspect]
     Dosage: 200 MG, 2X/DAY
     Route: 048

REACTIONS (11)
  - NEPHROLITHIASIS [None]
  - LEG AMPUTATION [None]
  - HYPERTENSION [None]
  - BRONCHOSPASM [None]
  - URINARY TRACT INFECTION [None]
  - BENIGN PROSTATIC HYPERPLASIA [None]
  - PHLEBITIS [None]
  - POLYCYTHAEMIA [None]
  - CHRONIC OBSTRUCTIVE PULMONARY DISEASE [None]
  - AORTIC ANEURYSM [None]
  - SLEEP APNOEA SYNDROME [None]
